FAERS Safety Report 23311066 (Version 1)
Quarter: 2023Q4

REPORT INFORMATION
  Report Type: Spontaneous
  Country: RO (occurrence: RO)
  Receive Date: 20231218
  Receipt Date: 20231218
  Transmission Date: 20240110
  Serious: Yes (Other)
  Sender: FDA-Public Use
  Company Number: RO-PFIZER INC-2020464548

PATIENT
  Age: 21 Year
  Sex: Male

DRUGS (6)
  1. METHYLPREDNISOLONE [Suspect]
     Active Substance: METHYLPREDNISOLONE
     Dosage: 32 MG
     Dates: start: 202009
  2. XELJANZ [Suspect]
     Active Substance: TOFACITINIB CITRATE
     Dosage: 10 MG, 2X/DAY
     Dates: start: 20201104, end: 20210105
  3. XELJANZ [Suspect]
     Active Substance: TOFACITINIB CITRATE
     Dosage: 5 MG, 2X/DAY (MAINTENANCE DOSE)
     Dates: start: 20210105
  4. MEDROL [Suspect]
     Active Substance: METHYLPREDNISOLONE
     Dosage: 10 MG, DAILY, REDUCES WITH 2.5MG AT 7 DAYS
     Dates: start: 20201104
  5. CONTROLOC [Concomitant]
     Active Substance: PANTOPRAZOLE SODIUM
     Dosage: 40 MG, DAILY
     Dates: start: 202009
  6. ASCORBIC ACID\FERRIC PYROPHOSPHATE [Concomitant]
     Active Substance: ASCORBIC ACID\FERRIC PYROPHOSPHATE
     Dosage: 30 MG, 2X/DAY
     Dates: start: 202009

REACTIONS (12)
  - Clostridium difficile infection [Recovered/Resolved]
  - Interferon gamma release assay positive [Unknown]
  - Clostridium test positive [Unknown]
  - Alanine aminotransferase increased [Unknown]
  - Aspartate aminotransferase increased [Unknown]
  - Alanine aminotransferase increased [Unknown]
  - Gamma-glutamyltransferase increased [Unknown]
  - Tremor [Unknown]
  - Haemoglobin increased [Unknown]
  - Pseudopolyp [Unknown]
  - Blood bilirubin abnormal [Unknown]
  - Diarrhoea [Unknown]

NARRATIVE: CASE EVENT DATE: 20200901
